FAERS Safety Report 7928273-9 (Version None)
Quarter: 2011Q4

REPORT INFORMATION
  Report Type: 
  Country: None (occurrence: None)
  Receive Date: 20111118
  Receipt Date: 20111108
  Transmission Date: 20120403
  Serious: Yes (Life-Threatening, Hospitalization, Disabling, Other)
  Sender: FDA-Public Use
  Company Number: CZ-MERCK-1110USA03500

PATIENT
  Age: 55 Year
  Sex: Female

DRUGS (3)
  1. FENOFIBRATE [Suspect]
     Route: 048
     Dates: start: 20100216, end: 20110830
  2. ATORVASTATIN CALCIUM [Suspect]
     Route: 048
     Dates: start: 20100216, end: 20110830
  3. ZETIA [Suspect]
     Route: 048
     Dates: start: 20100216, end: 20110830

REACTIONS (2)
  - RHABDOMYOLYSIS [None]
  - RENAL FAILURE [None]
